FAERS Safety Report 5903026-1 (Version None)
Quarter: 2008Q3

REPORT INFORMATION
  Report Type: 
  Country: None (occurrence: None)
  Receive Date: 20080930
  Receipt Date: 20080922
  Transmission Date: 20090109
  Serious: Yes (Hospitalization, Other)
  Sender: FDA-Public Use
  Company Number: US-AMGEN-QUU309273

PATIENT
  Sex: Female

DRUGS (2)
  1. ENBREL [Suspect]
     Indication: RHEUMATOID ARTHRITIS
     Route: 058
  2. METHOTREXATE [Concomitant]

REACTIONS (11)
  - DIAPHRAGMATIC INJURY [None]
  - LIMB CRUSHING INJURY [None]
  - OPEN WOUND [None]
  - PLEURAL EFFUSION [None]
  - PNEUMOTHORAX TRAUMATIC [None]
  - RIB FRACTURE [None]
  - ROAD TRAFFIC ACCIDENT [None]
  - SCAPULA FRACTURE [None]
  - SPLENIC INJURY [None]
  - TRAUMATIC LIVER INJURY [None]
  - WOUND INFECTION [None]
